FAERS Safety Report 4384351-5 (Version None)
Quarter: 2004Q2

REPORT INFORMATION
  Report Type: 
  Country: None (occurrence: None)
  Receive Date: 20040621
  Receipt Date: 20040608
  Transmission Date: 20050107
  Serious: Yes (Hospitalization)
  Sender: FDA-Public Use
  Company Number: 2004032720

PATIENT
  Age: 75 Year
  Sex: Male
  Weight: 83 kg

DRUGS (25)
  1. SORTIS (ATORVASTATIN) [Suspect]
     Indication: ARTERIAL REPAIR
     Dosage: 20 MG (20 MG, 1 IN 1 D) ,ORAL
     Route: 048
     Dates: start: 20020501, end: 20040501
  2. SORTIS (ATORVASTATIN) [Suspect]
     Indication: CEREBROVASCULAR ACCIDENT
     Dosage: 20 MG (20 MG, 1 IN 1 D) ,ORAL
     Route: 048
     Dates: start: 20020501, end: 20040501
  3. SORTIS (ATORVASTATIN) [Suspect]
     Indication: CORONARY ARTERY SURGERY
     Dosage: 20 MG (20 MG, 1 IN 1 D) ,ORAL
     Route: 048
     Dates: start: 20020501, end: 20040501
  4. SORTIS (ATORVASTATIN) [Suspect]
     Indication: HYPERLIPIDAEMIA
     Dosage: 20 MG (20 MG, 1 IN 1 D) ,ORAL
     Route: 048
     Dates: start: 20020501, end: 20040501
  5. METFORMIN HCL [Suspect]
     Indication: INSULIN RESISTANCE
     Dosage: 425 MG (850 MG, 1 IN 1 D), ORAL
     Route: 048
     Dates: start: 20030926, end: 20040501
  6. METFORMIN HCL [Suspect]
     Indication: OBESITY
     Dosage: 425 MG (850 MG, 1 IN 1 D), ORAL
     Route: 048
     Dates: start: 20030926, end: 20040501
  7. METFORMIN HCL [Suspect]
     Indication: WEIGHT
     Dosage: 425 MG (850 MG, 1 IN 1 D), ORAL
     Route: 048
     Dates: start: 20030926, end: 20040501
  8. PREDNISOLONE [Concomitant]
  9. METOPROLOL SUCCINATE [Concomitant]
  10. CARVEDILOL [Concomitant]
  11. ASPIRIN TAB [Concomitant]
  12. CLOPIDOGREL BISULFATE [Concomitant]
  13. RAMIPRIL [Concomitant]
  14. TORSEMIDE [Concomitant]
  15. GLYBURIDE [Concomitant]
  16. DIGITOXIN TAB [Concomitant]
  17. TROMCARDIN (ASPARTATE POTASSIUM, MAGNESIUM ASPARTATE) [Concomitant]
  18. ACARBOSE [Concomitant]
  19. MAGNESIUM OROTATE [Concomitant]
  20. FINASTERIDE [Concomitant]
  21. CARVEDILOL [Concomitant]
  22. ALL OTHER THERAPEUTIC PRODUCTS [Concomitant]
  23. LACTULOSE [Concomitant]
  24. PANTOPRAZOLE SODIUM [Concomitant]
  25. INSULIN [Concomitant]

REACTIONS (2)
  - DRUG INTERACTION [None]
  - RHABDOMYOLYSIS [None]
